FAERS Safety Report 8314710-7 (Version None)
Quarter: 2012Q2

REPORT INFORMATION
  Report Type: 
  Country: None (occurrence: None)
  Receive Date: 20120426
  Receipt Date: 20120420
  Transmission Date: 20120825
  Serious: Yes (Death)
  Sender: FDA-Public Use
  Company Number: GB-ELI_LILLY_AND_COMPANY-GB201203006427

PATIENT
  Sex: Female

DRUGS (2)
  1. ZYPREXA [Suspect]
     Dosage: 20 MG, QD
     Dates: end: 20090101
  2. ZYPREXA [Suspect]
     Indication: ALCOHOLIC PSYCHOSIS
     Dosage: 12.5 MG, QD

REACTIONS (4)
  - OFF LABEL USE [None]
  - ALCOHOL ABUSE [None]
  - DEATH [None]
  - BORDERLINE PERSONALITY DISORDER [None]
